FAERS Safety Report 7956115-4 (Version None)
Quarter: 2011Q4

REPORT INFORMATION
  Report Type: 
  Country: None (occurrence: None)
  Receive Date: 20111205
  Receipt Date: 20111121
  Transmission Date: 20120403
  Serious: Yes (Hospitalization, Other)
  Sender: FDA-Public Use
  Company Number: US-ELI_LILLY_AND_COMPANY-US201110007232

PATIENT
  Sex: Female
  Weight: 53 kg

DRUGS (16)
  1. PROZAC [Suspect]
     Indication: BIPOLAR DISORDER
     Dosage: 40 MG, EACH MORNING
     Dates: start: 20050101, end: 20110101
  2. MAGNESIUM SULFATE [Concomitant]
     Dosage: 500 MG, EACH MORNING
  3. CHLORHEXIDINE GLUCONATE [Concomitant]
     Dosage: 12 %, EACH EVENING
  4. PROCHLORPERAZINE [Concomitant]
     Indication: NAUSEA
     Dosage: 10 MG, UNK
  5. AVELOX [Concomitant]
     Dosage: 400 MG, UNK
     Dates: start: 20111111
  6. IMODIUM [Concomitant]
     Dosage: 2 MG, UNK
  7. FIBERCON [Concomitant]
     Dosage: UNK, BID
  8. NEXIUM [Concomitant]
     Dosage: 40 MG, EACH MORNING
  9. LITHIUM [Concomitant]
  10. LITHOBID [Concomitant]
     Dosage: 300 MG, BID
     Dates: start: 20111027
  11. PROZAC [Suspect]
     Dosage: 40 MG, EACH MORNING
     Dates: start: 20111027
  12. CLONAZEPAM [Concomitant]
     Dosage: 0.5 MG, PRN
  13. VALACICLOVIR [Concomitant]
     Dosage: 500 MG, EACH EVENING
  14. BIOTENE [Concomitant]
     Dosage: UNK, PRN
  15. KLOR-CON [Concomitant]
     Dosage: 10 MEQ, UNK
  16. REVLIMID [Concomitant]
     Dosage: 10 MG, EACH EVENING
     Dates: start: 20111111

REACTIONS (9)
  - HIP SURGERY [None]
  - DELIRIUM [None]
  - BLOOD ALBUMIN DECREASED [None]
  - MYELODYSPLASTIC SYNDROME [None]
  - OFF LABEL USE [None]
  - ASPARTATE AMINOTRANSFERASE INCREASED [None]
  - ALANINE AMINOTRANSFERASE INCREASED [None]
  - KNEE ARTHROPLASTY [None]
  - BLOOD ALKALINE PHOSPHATASE INCREASED [None]
